FAERS Safety Report 9703769 (Version 1)
Quarter: 2013Q4

REPORT INFORMATION
  Report Type: Spontaneous
  Country: US (occurrence: US)
  Receive Date: 20131122
  Receipt Date: 20131122
  Transmission Date: 20140711
  Serious: Yes (Other)
  Sender: FDA-Public Use
  Company Number: US-JNJFOC-20131108000

PATIENT
  Age: 26 Year
  Sex: Female
  Weight: 80.74 kg

DRUGS (18)
  1. TOPIRAMATE [Suspect]
     Indication: WEIGHT DECREASED
     Dosage: 50 MG TWICE IN MORNING AND 50 MG TWICE IN THE EVENING
     Route: 048
     Dates: start: 2012
  2. TOPIRAMATE [Suspect]
     Indication: CONVULSION
     Dosage: 50 MG TWICE IN MORNING AND 50 MG TWICE IN THE EVENING
     Route: 048
     Dates: start: 2012
  3. INVEGA [Suspect]
     Indication: ABNORMAL BEHAVIOUR
     Route: 048
     Dates: start: 20131007
  4. INVEGA [Suspect]
     Indication: ABNORMAL BEHAVIOUR
     Route: 048
     Dates: start: 2013, end: 2013
  5. INVEGA [Suspect]
     Indication: ABNORMAL BEHAVIOUR
     Route: 048
     Dates: start: 2013, end: 2013
  6. INVEGA [Suspect]
     Indication: ABNORMAL BEHAVIOUR
     Route: 048
     Dates: start: 2013, end: 2013
  7. INVEGA [Suspect]
     Indication: ABNORMAL BEHAVIOUR
     Route: 048
     Dates: start: 20130809, end: 20131007
  8. INVEGA [Suspect]
     Indication: CONFUSIONAL STATE
     Route: 048
     Dates: start: 2013, end: 2013
  9. INVEGA [Suspect]
     Indication: CONFUSIONAL STATE
     Route: 048
     Dates: start: 20130809, end: 20131007
  10. INVEGA [Suspect]
     Indication: CONFUSIONAL STATE
     Route: 048
     Dates: start: 2013, end: 2013
  11. INVEGA [Suspect]
     Indication: CONFUSIONAL STATE
     Route: 048
     Dates: start: 2013, end: 2013
  12. INVEGA [Suspect]
     Indication: CONFUSIONAL STATE
     Route: 048
     Dates: start: 20131007
  13. INVEGA [Suspect]
     Indication: AGITATION
     Route: 048
     Dates: start: 2013, end: 2013
  14. INVEGA [Suspect]
     Indication: AGITATION
     Route: 048
     Dates: start: 20130809, end: 20131007
  15. INVEGA [Suspect]
     Indication: AGITATION
     Route: 048
     Dates: start: 20131007
  16. INVEGA [Suspect]
     Indication: AGITATION
     Route: 048
     Dates: start: 2013, end: 2013
  17. INVEGA [Suspect]
     Indication: AGITATION
     Route: 048
     Dates: start: 2013, end: 2013
  18. LORAZEPAM [Concomitant]
     Indication: ANXIETY
     Route: 048

REACTIONS (8)
  - Convulsion [Unknown]
  - Weight increased [Unknown]
  - Dyspnoea [Unknown]
  - Rash [Unknown]
  - Thirst [Unknown]
  - Headache [Unknown]
  - Drug ineffective [Unknown]
  - Polymenorrhoea [Not Recovered/Not Resolved]
